FAERS Safety Report 12634480 (Version 2)
Quarter: 2016Q3

REPORT INFORMATION
  Report Type: Spontaneous
  Country: JP (occurrence: JP)
  Receive Date: 20160808
  Receipt Date: 20160816
  Transmission Date: 20161109
  Serious: Yes (Other)
  Sender: FDA-Public Use
  Company Number: PHHY2016JP105269

PATIENT
  Age: 67 Year
  Sex: Male

DRUGS (15)
  1. OXALIPLATIN. [Suspect]
     Active Substance: OXALIPLATIN
     Indication: COLORECTAL CANCER
     Dosage: 50 MG/M2, UNK
     Route: 065
  2. 5 FLUORO URACIL [Concomitant]
     Active Substance: FLUOROURACIL
     Indication: COLORECTAL CANCER
     Dosage: 235 MG/M2, UNK
     Route: 042
  3. OXALIPLATIN. [Suspect]
     Active Substance: OXALIPLATIN
     Dosage: 85 MG/M2, UNK
     Route: 065
  4. 5 FLUORO URACIL [Concomitant]
     Active Substance: FLUOROURACIL
     Dosage: 2400 MG/M2, UNK
     Route: 041
  5. 5 FLUORO URACIL [Concomitant]
     Active Substance: FLUOROURACIL
     Dosage: 1412 MG/M2, UNK
     Route: 041
  6. LEUCOVORIN. [Concomitant]
     Active Substance: LEUCOVORIN
     Indication: COLORECTAL CANCER
     Route: 065
  7. 5 FLUORO URACIL [Concomitant]
     Active Substance: FLUOROURACIL
     Dosage: 400 MG/M2, UNK
     Route: 042
  8. DEXAMETHASONE. [Concomitant]
     Active Substance: DEXAMETHASONE
     Indication: NAUSEA
     Route: 065
  9. DEXAMETHASONE. [Concomitant]
     Active Substance: DEXAMETHASONE
     Indication: VOMITING
  10. OXALIPLATIN. [Suspect]
     Active Substance: OXALIPLATIN
     Dosage: 60 MG/M2, UNK
     Route: 065
  11. 5 FLUORO URACIL [Concomitant]
     Active Substance: FLUOROURACIL
     Dosage: 1129 MG/M2, UNK
     Route: 041
  12. BEVACIZUMAB [Concomitant]
     Active Substance: BEVACIZUMAB
     Indication: COLORECTAL CANCER
     Route: 065
  13. OXALIPLATIN. [Suspect]
     Active Substance: OXALIPLATIN
     Dosage: 70 MG/M2, UNK
     Route: 065
  14. 5 FLUORO URACIL [Concomitant]
     Active Substance: FLUOROURACIL
     Dosage: 282 MG/M2, UNK
     Route: 042
  15. 5 FLUORO URACIL [Concomitant]
     Active Substance: FLUOROURACIL
     Dosage: 1694 MG/M2, UNK
     Route: 041

REACTIONS (1)
  - Bone marrow failure [Unknown]
